FAERS Safety Report 6831898-5 (Version None)
Quarter: 2010Q3

REPORT INFORMATION
  Report Type: 
  Country: None (occurrence: None)
  Receive Date: 20100712
  Receipt Date: 20100706
  Transmission Date: 20110219
  Serious: Yes (Other)
  Sender: FDA-Public Use
  Company Number: HQWYE482015SEP05

PATIENT
  Sex: Female

DRUGS (4)
  1. PREMPHASE 14/14 [Suspect]
  2. TESTOSTERONE [Suspect]
  3. OESTRIOL + OESTRADIOL [Suspect]
  4. PROGESTERONE GEL [Suspect]

REACTIONS (1)
  - BREAST CANCER METASTATIC [None]
